FAERS Safety Report 8504517-X (Version None)
Quarter: 2012Q3

REPORT INFORMATION
  Report Type: 
  Country: None (occurrence: None)
  Receive Date: 20120711
  Receipt Date: 20120705
  Transmission Date: 20120928
  Serious: Yes (Other)
  Sender: FDA-Public Use
  Company Number: GB-PFIZER INC-2012104748

PATIENT
  Age: 34 Year
  Sex: Female

DRUGS (1)
  1. LYRICA [Suspect]
     Indication: NEURALGIA
     Dosage: 150 MG DAILY
     Dates: start: 20100601, end: 20120301

REACTIONS (2)
  - BENIGN HYDATIDIFORM MOLE [None]
  - ABORTION SPONTANEOUS [None]
